FAERS Safety Report 25204411 (Version 5)
Quarter: 2025Q4

REPORT INFORMATION
  Report Type: Report from Study
  Country: US (occurrence: None)
  Receive Date: 20250416
  Receipt Date: 20251107
  Transmission Date: 20260117
  Serious: Yes (Other)
  Sender: UCB
  Company Number: US-UCBSA-2025022335

PATIENT
  Age: 20 Year
  Weight: 57 kg

DRUGS (3)
  1. FENFLURAMINE [Suspect]
     Active Substance: FENFLURAMINE
     Indication: Lennox-Gastaut syndrome
     Dosage: TAKE 2 ML TWICE DAILY FOR ONE WEEK, THEN INCREASE TO 4 ML TWICE DAILY FOR ONE WEEK, THEN INCREASE TO 6 ML TWICE DAILY AND STAY AT THAT DOSE
  2. FENFLURAMINE [Suspect]
     Active Substance: FENFLURAMINE
     Dosage: 0.5 MILLIGRAM/KILOGRAM (26 MILLIGRAM/DAY)
  3. FENFLURAMINE [Suspect]
     Active Substance: FENFLURAMINE
     Dosage: 6 MILLILITER, 2X/DAY (BID)

REACTIONS (4)
  - Tricuspid valve incompetence [Not Recovered/Not Resolved]
  - Aortic dilatation [Recovered/Resolved]
  - Seizure [Unknown]
  - Sleep disorder [Not Recovered/Not Resolved]
